FAERS Safety Report 8481407-2 (Version None)
Quarter: 2012Q2

REPORT INFORMATION
  Report Type: 
  Country: None (occurrence: None)
  Receive Date: 20120626
  Receipt Date: 20120626
  Transmission Date: 20120825
  Serious: Yes (Hospitalization)
  Sender: FDA-Public Use
  Company Number: None

PATIENT
  Sex: Male
  Weight: 96.6162 kg

DRUGS (8)
  1. NIFEDIAC CC 60MG [Concomitant]
  2. PEGASYS [Concomitant]
  3. TRIAMTERENE AND HYDROCHLOROTHIAZIDE [Concomitant]
  4. RIBASPHERE [Suspect]
     Indication: HEPATITIS C
     Dosage: 600MG TWICE A DAY BY MOUTH
     Route: 048
     Dates: start: 20120406
  5. OXYCONTIN [Concomitant]
  6. SERTRALINE HYDROCHLORIDE [Concomitant]
  7. OXYCODONE 30MG [Concomitant]
  8. INCIVEK [Concomitant]

REACTIONS (4)
  - VOMITING [None]
  - DECREASED APPETITE [None]
  - DIZZINESS [None]
  - NAUSEA [None]
